FAERS Safety Report 13183319 (Version 1)
Quarter: 2017Q1

REPORT INFORMATION
  Report Type: Spontaneous
  Country: US (occurrence: US)
  Receive Date: 20170203
  Receipt Date: 20170203
  Transmission Date: 20170428
  Serious: Yes (Other)
  Sender: FDA-Public Use
  Company Number: US-CELGENEUS-USA-2017018040

PATIENT

DRUGS (3)
  1. RUXOLITINIB [Suspect]
     Active Substance: RUXOLITINIB
     Indication: NEOPLASM
     Route: 065
  2. GEMCITABINE [Suspect]
     Active Substance: GEMCITABINE\GEMCITABINE HYDROCHLORIDE
     Indication: NEOPLASM
     Route: 065
  3. ABRAXANE [Suspect]
     Active Substance: PACLITAXEL
     Indication: NEOPLASM
     Route: 065

REACTIONS (22)
  - Thrombocytopenia [Unknown]
  - Dyspnoea [Unknown]
  - Diarrhoea [Unknown]
  - Dehydration [Unknown]
  - Pneumonia [Unknown]
  - Alopecia [Unknown]
  - Oedema peripheral [Unknown]
  - Nausea [Unknown]
  - Cough [Unknown]
  - Decreased appetite [Unknown]
  - Leukopenia [Unknown]
  - Asthenia [Unknown]
  - Fatigue [Unknown]
  - Sepsis [Unknown]
  - Neuropathy peripheral [Unknown]
  - Pyrexia [Unknown]
  - Lymphopenia [Unknown]
  - Abdominal pain [Unknown]
  - Neutropenia [Unknown]
  - Dizziness [Unknown]
  - Anaemia [Unknown]
  - Pain in extremity [Unknown]
